FAERS Safety Report 23356878 (Version 1)
Quarter: 2023Q4

REPORT INFORMATION
  Report Type: Spontaneous
  Country: US (occurrence: None)
  Receive Date: 20231229
  Receipt Date: 20231229
  Transmission Date: 20240110
  Serious: Yes (Life-Threatening, Other)
  Sender: FDA-Public Use
  Company Number: None

PATIENT
  Age: 20 Year
  Sex: 0
  Weight: 65.25 kg

DRUGS (2)
  1. FINASTERIDE [Suspect]
     Active Substance: FINASTERIDE
     Indication: Androgenetic alopecia
     Dosage: OTHER QUANTITY : .5 TABLET(S);?FREQUENCY : DAILY;?
     Route: 048
     Dates: start: 20221215, end: 20231115
  2. TESTOSTERONE CYPIONATE [Concomitant]

REACTIONS (8)
  - Brain fog [None]
  - Confusional state [None]
  - Emotional disorder [None]
  - Suicidal ideation [None]
  - Depression [None]
  - Eye disorder [None]
  - Feeling abnormal [None]
  - Head discomfort [None]

NARRATIVE: CASE EVENT DATE: 20231222
